FAERS Safety Report 6648072-8 (Version None)
Quarter: 2010Q1

REPORT INFORMATION
  Report Type: 
  Country: None (occurrence: None)
  Receive Date: 20100324
  Receipt Date: 20100318
  Transmission Date: 20100710
  Serious: Yes (Life-Threatening)
  Sender: FDA-Public Use
  Company Number: PHHY2010JP09067

PATIENT
  Age: 70 Year
  Sex: Female
  Weight: 33 kg

DRUGS (20)
  1. VOLTAREN [Suspect]
     Indication: PYREXIA
     Dosage: UNK
     Route: 048
  2. LOXONIN [Suspect]
     Dosage: 120 MG, DAILY
     Route: 048
     Dates: start: 20081115, end: 20081225
  3. FAMOTIDINE [Suspect]
     Dosage: 2 DF, DAILY
     Route: 048
     Dates: start: 20081115, end: 20081225
  4. SOFALCONE [Concomitant]
     Route: 048
  5. RIFAMPICIN [Concomitant]
  6. ETHAMBUTOL HYDROCHLORIDE [Concomitant]
     Dosage: UNK
  7. CLARITHROMYCIN [Concomitant]
     Dosage: UNK
  8. CEFOPERAZONE SODIUM/SULBACTAM SODIUM [Concomitant]
     Dosage: UNK
  9. ANTIBIOTICS-RESISTANT LACTIC ACID BACTERIAE [Concomitant]
     Dosage: UNK
  10. AMBROXOL HYDROCHLORIDE [Concomitant]
     Dosage: UNK
  11. CODEINE SULFATE [Concomitant]
     Dosage: UNK
  12. ITRACONAZOLE [Concomitant]
     Dosage: UNK
  13. STREPTOMYCIN SULFATE [Concomitant]
     Dosage: UNK
  14. KANAMYCIN SULFATE [Concomitant]
     Dosage: UNK
  15. LEVOFLOXACIN [Concomitant]
     Dosage: UNK
  16. TOSUFLOXACIN TOSILATE [Concomitant]
     Dosage: UNK
  17. ACETAMINOPHEN [Concomitant]
     Dosage: UNK
  18. BYAKKO-KA-NINJIN-TO [Concomitant]
     Dosage: UNK
  19. BAKUMONDOUTO [Concomitant]
     Dosage: UNK
  20. NIZATIDINE [Concomitant]
     Dosage: UNK

REACTIONS (1)
  - INTERSTITIAL LUNG DISEASE [None]
